FAERS Safety Report 20031896 (Version 9)
Quarter: 2024Q3

REPORT INFORMATION
  Report Type: Report from Study
  Country: FR (occurrence: FR)
  Receive Date: 20211103
  Receipt Date: 20240925
  Transmission Date: 20241017
  Serious: Yes (Hospitalization, Other)
  Sender: ABBVIE
  Company Number: FR-ABBVIE-21K-056-4138092-00

PATIENT
  Age: 42 Year
  Sex: Male

DRUGS (8)
  1. SKYRIZI [Suspect]
     Active Substance: RISANKIZUMAB-RZAA
     Indication: Psoriasis
     Route: 058
     Dates: start: 20210108, end: 202102
  2. SKYRIZI [Suspect]
     Active Substance: RISANKIZUMAB-RZAA
     Route: 058
     Dates: start: 202102, end: 20210518
  3. SKYRIZI [Suspect]
     Active Substance: RISANKIZUMAB-RZAA
     Route: 058
     Dates: start: 20211027
  4. SKYRIZI [Suspect]
     Active Substance: RISANKIZUMAB-RZAA
     Route: 058
     Dates: start: 20210519, end: 202108
  5. ESCITALOPRAM [Concomitant]
     Active Substance: ESCITALOPRAM OXALATE
     Indication: Affective disorder
     Dosage: FORM STRENGTH: 5 MILLIGRAM
     Route: 048
     Dates: start: 20220908, end: 20220923
  6. BROMAZEPAM [Concomitant]
     Active Substance: BROMAZEPAM
     Indication: Affective disorder
     Dosage: FORM STRENGTH: 6MG?IN CASE OF ANXIETY ATTACK
     Route: 048
     Dates: start: 20220908, end: 20220923
  7. GAVISCON [Concomitant]
     Active Substance: ALUMINUM HYDROXIDE\MAGNESIUM CARBONATE
     Indication: Abdominal discomfort
     Dosage: TIME INTERVAL: 0.33333333 DAYS: 6 TABLET
     Route: 048
     Dates: start: 202309
  8. DERMALIBOUR [Concomitant]
     Indication: Inflammation
     Dosage: 1 APPLICATION, BARRIER
     Route: 061
     Dates: start: 202206

REACTIONS (3)
  - Cervicobrachial syndrome [Recovered/Resolved]
  - Intervertebral disc protrusion [Recovered/Resolved]
  - COVID-19 [Recovered/Resolved]

NARRATIVE: CASE EVENT DATE: 20210801
